FAERS Safety Report 5236350-9 (Version None)
Quarter: 2007Q1

REPORT INFORMATION
  Report Type: 
  Country: None (occurrence: None)
  Receive Date: 20070208
  Receipt Date: 20070202
  Transmission Date: 20070707
  Serious: Yes (Other)
  Sender: FDA-Public Use
  Company Number: 2007SP002101

PATIENT
  Age: 66 Year
  Sex: Male

DRUGS (1)
  1. TEMODAL [Suspect]
     Indication: ANAPLASTIC ASTROCYTOMA
     Dosage: 150 MG/M2; QD, PO
     Route: 048
     Dates: start: 20061027

REACTIONS (2)
  - INTRACRANIAL TUMOUR HAEMORRHAGE [None]
  - TUMOUR HAEMORRHAGE [None]
